FAERS Safety Report 8116903-0 (Version None)
Quarter: 2012Q1

REPORT INFORMATION
  Report Type: 
  Country: None (occurrence: None)
  Receive Date: 20120206
  Receipt Date: 20120202
  Transmission Date: 20120608
  Serious: Yes (Life-Threatening)
  Sender: FDA-Public Use
  Company Number: PHHY2012GB008900

PATIENT
  Age: 1 Day
  Sex: Male
  Weight: 2.78 kg

DRUGS (1)
  1. CITALOPRAM HYDROBROMIDE [Suspect]
     Route: 064

REACTIONS (1)
  - PULMONARY HYPERTENSION [None]
